FAERS Safety Report 9306339 (Version 1)
Quarter: 2013Q2

REPORT INFORMATION
  Report Type: Spontaneous
  Country: IT (occurrence: None)
  Receive Date: 20130520
  Receipt Date: 20130520
  Transmission Date: 20140414
  Serious: Yes (Other)
  Sender: FDA-Public Use
  Company Number: 1711751

PATIENT
  Age: 53 Year
  Sex: Male
  Weight: 178 kg

DRUGS (2)
  1. CYTARABINE [Suspect]
     Indication: B-CELL LYMPHOMA
     Dosage: CYCLICAL
     Dates: start: 20130424, end: 20130426
  2. ETOPOSIDE TEVA [Suspect]
     Indication: B-CELL LYMPHOMA
     Dosage: CYCLICAL
     Route: 042
     Dates: start: 20130424, end: 20130426

REACTIONS (7)
  - Asthenia [None]
  - Erythema [None]
  - Pruritus [None]
  - Pyrexia [None]
  - Therapeutic response decreased [None]
  - Flushing [None]
  - Paraesthesia [None]
